FAERS Safety Report 21714907 (Version 1)
Quarter: 2022Q4

REPORT INFORMATION
  Report Type: Report from Study
  Country: US (occurrence: US)
  Receive Date: 20221212
  Receipt Date: 20221212
  Transmission Date: 20230113
  Serious: Yes (Other)
  Sender: FDA-Public Use
  Company Number: US-ABBVIE-4231018

PATIENT
  Sex: Female

DRUGS (1)
  1. HUMIRA [Suspect]
     Active Substance: ADALIMUMAB
     Indication: Rheumatoid arthritis
     Route: 058

REACTIONS (5)
  - Internal haemorrhage [Not Recovered/Not Resolved]
  - Urinary tract infection [Recovering/Resolving]
  - Road traffic accident [Unknown]
  - Skin laceration [Recovering/Resolving]
  - Wound infection [Recovering/Resolving]
